FAERS Safety Report 20018721 (Version 2)
Quarter: 2021Q4

REPORT INFORMATION
  Report Type: Spontaneous
  Country: SE (occurrence: SE)
  Receive Date: 20211101
  Receipt Date: 20211108
  Transmission Date: 20220303
  Serious: Yes (Hospitalization)
  Sender: FDA-Public Use
  Company Number: None

PATIENT
  Age: 60 Year
  Sex: Female
  Weight: 69 kg

DRUGS (10)
  1. SPRAVATO [Suspect]
     Active Substance: ESKETAMINE
     Indication: Depression
     Dosage: DOSERING: 2 NASSPRAY VARANNAN VECKA.
     Dates: start: 20210603
  2. LAMOTRIGINE [Concomitant]
     Active Substance: LAMOTRIGINE
     Dosage: 100 MG 0+2+0+1
     Route: 048
     Dates: start: 20210113
  3. ACETAMINOPHEN [Concomitant]
     Active Substance: ACETAMINOPHEN
     Route: 048
     Dates: start: 20210618
  4. ESTRIOL [Concomitant]
     Active Substance: ESTRIOL
     Route: 067
     Dates: start: 20210608
  5. VENLAFAXINE HYDROCHLORIDE [Concomitant]
     Active Substance: VENLAFAXINE HYDROCHLORIDE
     Dosage: 75 MG 2X2
     Route: 048
     Dates: start: 20201221
  6. ZOPIKLON PILUM [Concomitant]
     Route: 048
     Dates: start: 20210506
  7. PROPIOMAZINE [Concomitant]
     Active Substance: PROPIOMAZINE
     Dosage: 25 MG 1VB
     Route: 048
     Dates: start: 20210908
  8. LEVOMEPROMAZINE [Concomitant]
     Active Substance: LEVOMEPROMAZINE
     Dosage: 25 MG 1VB TILL NATTEN; AS REQUIRED
     Route: 048
     Dates: start: 20210525
  9. POLYETHYLENE GLYCOL 3350\POTASSIUM CHLORIDE\SODIUM BICARBONATE\SODIUM [Concomitant]
     Active Substance: POLYETHYLENE GLYCOL 3350\POTASSIUM CHLORIDE\SODIUM BICARBONATE\SODIUM CHLORIDE
     Dosage: 1-2 VB; AS REQUIRED
     Route: 048
     Dates: start: 20210507
  10. DIKLOFENAK ORIFARM [Concomitant]
     Dosage: 25 MG 1VB; AS REQUIRED
     Route: 048
     Dates: start: 20210525

REACTIONS (2)
  - Fear of death [Recovered/Resolved]
  - Panic attack [Recovered/Resolved]

NARRATIVE: CASE EVENT DATE: 20211018
